FAERS Safety Report 10953066 (Version 1)
Quarter: 2015Q1

REPORT INFORMATION
  Report Type: Spontaneous
  Country: US (occurrence: US)
  Receive Date: 20150325
  Receipt Date: 20150325
  Transmission Date: 20150721
  Serious: Yes (Death)
  Sender: FDA-Public Use
  Company Number: US-CIPLA LTD.-2015US02283

PATIENT

DRUGS (4)
  1. CITALOPRAM [Suspect]
     Active Substance: CITALOPRAM HYDROBROMIDE
  2. DIAZEPAM. [Suspect]
     Active Substance: DIAZEPAM
  3. AMITRIPTYLINE [Suspect]
     Active Substance: AMITRIPTYLINE
  4. BUPROPION [Suspect]
     Active Substance: BUPROPION

REACTIONS (1)
  - Completed suicide [Fatal]
